FAERS Safety Report 23040196 (Version 1)
Quarter: 2023Q4

REPORT INFORMATION
  Report Type: Spontaneous
  Country: DE (occurrence: None)
  Receive Date: 20231006
  Receipt Date: 20231006
  Transmission Date: 20240109
  Serious: Yes (Other)
  Sender: FDA-Public Use
  Company Number: 2023A209261

PATIENT
  Age: 65 Year
  Sex: Male

DRUGS (5)
  1. OSIMERTINIB [Suspect]
     Active Substance: OSIMERTINIB
     Indication: Lung adenocarcinoma
     Route: 048
     Dates: start: 202112
  2. OSIMERTINIB [Suspect]
     Active Substance: OSIMERTINIB
     Indication: Lung adenocarcinoma
     Route: 048
  3. CISPLATIN [Concomitant]
     Active Substance: CISPLATIN
     Dosage: 75 MG/ M?,ADMINISTERED EVERY THREE WEEKS
     Dates: start: 202110
  4. PEMETREXED [Concomitant]
     Active Substance: PEMETREXED
     Dosage: 500 MG/M?,ADMINISTERED EVERY THREE WEEKS
  5. ZOLEDRONIC ACID [Concomitant]
     Active Substance: ZOLEDRONIC ACID
     Indication: Metastases to bone
     Route: 042
     Dates: start: 202110

REACTIONS (4)
  - Malignant neoplasm progression [Unknown]
  - Thrombocytopenia [Recovered/Resolved]
  - Pleural effusion [Unknown]
  - Off label use [Unknown]

NARRATIVE: CASE EVENT DATE: 20220801
